FAERS Safety Report 23310342 (Version 3)
Quarter: 2024Q1

REPORT INFORMATION
  Report Type: Spontaneous
  Country: US (occurrence: US)
  Receive Date: 20231218
  Receipt Date: 20240130
  Transmission Date: 20240410
  Serious: No
  Sender: FDA-Public Use
  Company Number: US-PFIZER INC-202300435740

PATIENT
  Sex: Male

DRUGS (2)
  1. NGENLA [Suspect]
     Active Substance: SOMATROGON-GHLA
     Dosage: ONCE WEEKLY INJECTION
  2. NGENLA [Suspect]
     Active Substance: SOMATROGON-GHLA
     Dosage: DAILY INJECTION

REACTIONS (1)
  - Injection site pain [Unknown]
